FAERS Safety Report 9684269 (Version 1)
Quarter: 2013Q4

REPORT INFORMATION
  Report Type: Spontaneous
  Country: US (occurrence: US)
  Receive Date: 20131112
  Receipt Date: 20131112
  Transmission Date: 20140711
  Serious: Yes (Other)
  Sender: FDA-Public Use
  Company Number: US-PFIZER INC-2013317618

PATIENT
  Age: 61 Year
  Sex: Male

DRUGS (3)
  1. CISPLATIN [Suspect]
     Indication: HODGKIN^S DISEASE
     Dosage: UNK
  2. CYTARABINE [Suspect]
     Indication: HODGKIN^S DISEASE
     Dosage: UNK
  3. DEXAMETHASONE SODIUM PHOSPHATE [Suspect]
     Indication: HODGKIN^S DISEASE
     Dosage: UNK

REACTIONS (1)
  - Pancytopenia [Unknown]
